FAERS Safety Report 10262791 (Version 2)
Quarter: 2014Q2

REPORT INFORMATION
  Report Type: Report from Study
  Country: US (occurrence: US)
  Receive Date: 20140626
  Receipt Date: 20140626
  Transmission Date: 20141212
  Serious: Yes (Other)
  Sender: FDA-Public Use
  Company Number: US-MYLANLABS-2013S1016731

PATIENT
  Age: 43 Year
  Sex: Male

DRUGS (7)
  1. CLOZAPINE TABLETS [Suspect]
     Route: 048
     Dates: end: 20130823
  2. CLOZAPINE TABLETS [Suspect]
     Dates: start: 2013
  3. OLANZAPINE ODT [Concomitant]
  4. OLANZAPINE [Concomitant]
  5. PERPHENAZINE [Concomitant]
  6. LORAZEPAM [Concomitant]
  7. POLYETHYLENE GLYCOL [Concomitant]

REACTIONS (1)
  - Granulocytopenia [Not Recovered/Not Resolved]
